FAERS Safety Report 19899876 (Version 7)
Quarter: 2024Q4

REPORT INFORMATION
  Report Type: Report from Study
  Country: JP (occurrence: JP)
  Receive Date: 20210930
  Receipt Date: 20241001
  Transmission Date: 20250115
  Serious: Yes (Other)
  Sender: VIIV
  Company Number: JP-VIIV HEALTHCARE ULC-JP2018JPN193540

PATIENT

DRUGS (11)
  1. DOLUTEGRAVIR [Suspect]
     Active Substance: DOLUTEGRAVIR
     Indication: HIV infection
     Dosage: 1 DF, 1D
     Route: 048
     Dates: start: 20170826, end: 20210913
  2. DESCOVY [Suspect]
     Active Substance: EMTRICITABINE\TENOFOVIR ALAFENAMIDE FUMARATE
     Indication: HIV infection
     Dosage: 1 DF, 1D
     Route: 048
     Dates: start: 20170826, end: 20210913
  3. SULFAMERAZINE\TRIMETHOPRIM [Suspect]
     Active Substance: SULFAMERAZINE\TRIMETHOPRIM
     Indication: Antifungal prophylaxis
     Dosage: UNK
     Route: 048
     Dates: start: 20170826, end: 20180808
  4. DOVATO [Suspect]
     Active Substance: DOLUTEGRAVIR SODIUM\LAMIVUDINE
     Indication: HIV infection
     Dosage: 1 DF, 1D
  5. KETOCONAZOLE [Concomitant]
     Active Substance: KETOCONAZOLE
     Indication: Seborrhoeic dermatitis
     Dosage: UNK
     Dates: start: 20170826, end: 201709
  6. RINDERON [Concomitant]
     Indication: Seborrhoeic dermatitis
     Dosage: UNK
     Dates: start: 20170826, end: 201709
  7. Talion [Concomitant]
     Dosage: UNK
     Dates: start: 20180317, end: 201805
  8. CELESTAMINE [Concomitant]
     Active Substance: BETAMETHASONE\DEXCHLORPHENIRAMINE MALEATE
     Dosage: UNK
     Dates: start: 20180317, end: 201805
  9. PATANOL [Concomitant]
     Active Substance: OLOPATADINE HYDROCHLORIDE
     Dosage: UNK
     Dates: start: 20180317, end: 201805
  10. BILASTINE [Concomitant]
     Active Substance: BILASTINE
     Indication: Seasonal allergy
     Dosage: UNK
     Dates: start: 20190228, end: 20190428
  11. ALESION [Concomitant]
     Active Substance: EPINASTINE HYDROCHLORIDE
     Indication: Seasonal allergy
     Dosage: UNK
     Dates: start: 20190228, end: 20190428

REACTIONS (20)
  - Syphilis [Recovering/Resolving]
  - Folliculitis [Recovering/Resolving]
  - Tinea pedis [Recovering/Resolving]
  - Oral herpes [Recovering/Resolving]
  - Herpes virus infection [Recovering/Resolving]
  - Solar dermatitis [Recovering/Resolving]
  - Liver disorder [Recovering/Resolving]
  - Palmoplantar keratoderma [Recovering/Resolving]
  - Genital candidiasis [Recovering/Resolving]
  - Stomatitis [Recovering/Resolving]
  - Liver disorder [Recovered/Resolved]
  - Beta 2 microglobulin urine increased [Recovered/Resolved]
  - Blood creatine phosphokinase increased [Recovered/Resolved]
  - Seasonal allergy [Recovering/Resolving]
  - Weight increased [Not Recovered/Not Resolved]
  - Acne [Recovering/Resolving]
  - Syphilis [Recovering/Resolving]
  - Stomatitis [Recovering/Resolving]
  - COVID-19 [Recovered/Resolved]
  - Hyperkeratosis [Recovering/Resolving]

NARRATIVE: CASE EVENT DATE: 20170909
